FAERS Safety Report 11333909 (Version 1)
Quarter: 2015Q3

REPORT INFORMATION
  Report Type: Spontaneous
  Country: US (occurrence: US)
  Receive Date: 20150803
  Receipt Date: 20150803
  Transmission Date: 20151125
  Serious: No
  Sender: FDA-Public Use
  Company Number: US-PFIZER INC-2015253663

PATIENT
  Age: 61 Year
  Sex: Male
  Weight: 66 kg

DRUGS (4)
  1. VORICONAZOLE. [Suspect]
     Active Substance: VORICONAZOLE
     Dosage: UNK
  2. VIRACEPT [Concomitant]
     Active Substance: NELFINAVIR MESYLATE
     Dosage: UNK
  3. METOPROLOL [Concomitant]
     Active Substance: METOPROLOL
     Dosage: UNK, DAILY
  4. COMBIVIR [Concomitant]
     Active Substance: LAMIVUDINE\ZIDOVUDINE
     Dosage: UNK

REACTIONS (1)
  - Photosensitivity reaction [Unknown]
